FAERS Safety Report 17577112 (Version 1)
Quarter: 2020Q1

REPORT INFORMATION
  Report Type: Spontaneous
  Country: US (occurrence: US)
  Receive Date: 20200319
  Receipt Date: 20200319
  Transmission Date: 20200409
  Serious: Yes (Hospitalization)
  Sender: FDA-Public Use
  Company Number: None

PATIENT
  Age: 67 Year
  Sex: Male

DRUGS (30)
  1. HUMIRA [Suspect]
     Active Substance: ADALIMUMAB
     Indication: GASTROINTESTINAL DISORDER
     Route: 058
     Dates: start: 20160119
  2. TRAMADOL HCL [Concomitant]
     Active Substance: TRAMADOL HYDROCHLORIDE
  3. HYDROCHLOROT [Concomitant]
     Active Substance: HYDROCHLOROTHIAZIDE
  4. AZELAI ACID [Concomitant]
  5. BENZONATATE. [Concomitant]
     Active Substance: BENZONATATE
  6. SUPREP BOWEL SOL PREP KIT [Concomitant]
  7. METHYPRED [Concomitant]
  8. PREDNISONE. [Concomitant]
     Active Substance: PREDNISONE
  9. HYDROCHLOROT [Concomitant]
     Active Substance: HYDROCHLOROTHIAZIDE
  10. AMLOD/BENAZ [Concomitant]
  11. OMEPRAZOLE. [Concomitant]
     Active Substance: OMEPRAZOLE
  12. SMZ/TMP [Concomitant]
     Active Substance: SULFAMETHOXAZOLE\TRIMETHOPRIM
  13. BENAZEPRIL [Concomitant]
     Active Substance: BENAZEPRIL HYDROCHLORIDE
  14. CIPROFLOXACIN. [Concomitant]
     Active Substance: CIPROFLOXACIN
  15. METRONIZADOL [Concomitant]
  16. METHYLPRED [Concomitant]
     Active Substance: METHYLPREDNISOLONE
  17. METOPROL SUC ER [Concomitant]
  18. CEPHALEXIN. [Concomitant]
     Active Substance: CEPHALEXIN
  19. AMLODIPINE [Concomitant]
     Active Substance: AMLODIPINE BESYLATE
  20. HUMIRA [Suspect]
     Active Substance: ADALIMUMAB
     Indication: COLITIS
     Route: 058
     Dates: start: 20160119
  21. ZOLPIDEN [Concomitant]
     Active Substance: ZOLPIDEM TARTRATE
  22. COLESEVELAM [Concomitant]
     Active Substance: COLESEVELAM
  23. AZITHROMYCIN ANHYDROUS. [Concomitant]
     Active Substance: AZITHROMYCIN ANHYDROUS
  24. BUDESONIDE DR [Concomitant]
  25. POT CHLORIDE [Concomitant]
     Active Substance: POTASSIUM CHLORIDE
  26. CREON [Concomitant]
     Active Substance: PANCRELIPASE AMYLASE\PANCRELIPASE LIPASE\PANCRELIPASE PROTEASE
  27. ATORVASTATIN [Concomitant]
     Active Substance: ATORVASTATIN
  28. BALSALAZIDE [Concomitant]
     Active Substance: BALSALAZIDE
  29. HYDROCO/APAP [Concomitant]
     Active Substance: ACETAMINOPHEN\HYDROCODONE
  30. ZOLPIDEM [Concomitant]
     Active Substance: ZOLPIDEM TARTRATE

REACTIONS (4)
  - Weight decreased [None]
  - Nasopharyngitis [None]
  - Respiratory disorder [None]
  - Colitis ulcerative [None]

NARRATIVE: CASE EVENT DATE: 202001
